FAERS Safety Report 10241952 (Version 1)
Quarter: 2014Q2

REPORT INFORMATION
  Report Type: Spontaneous
  Country: US (occurrence: US)
  Receive Date: 20140617
  Receipt Date: 20140617
  Transmission Date: 20141212
  Serious: Yes (Other)
  Sender: FDA-Public Use
  Company Number: US-ASTELLAS-2014US006891

PATIENT
  Sex: Female

DRUGS (5)
  1. TARCEVA [Suspect]
     Indication: LUNG NEOPLASM MALIGNANT
     Route: 065
  2. TARCEVA [Suspect]
     Indication: BONE CANCER
     Dosage: 150 UNK, UNK
     Route: 048
     Dates: start: 20131116
  3. TARCEVA [Suspect]
     Indication: BONE CANCER
  4. TARCEVA [Suspect]
     Indication: LUNG NEOPLASM MALIGNANT
  5. PREDNISONE [Concomitant]
     Indication: PRODUCT USED FOR UNKNOWN INDICATION
     Dosage: UNK UNK, UNKNOWN FREQ.
     Route: 065

REACTIONS (6)
  - Breast cancer [Unknown]
  - Weight decreased [Not Recovered/Not Resolved]
  - Frequent bowel movements [Unknown]
  - Flatulence [Unknown]
  - Diarrhoea [Not Recovered/Not Resolved]
  - Asthenia [Unknown]
